FAERS Safety Report 4860819-X (Version None)
Quarter: 2005Q4

REPORT INFORMATION
  Report Type: 
  Country: None (occurrence: None)
  Receive Date: 20051216
  Receipt Date: 20051216
  Transmission Date: 20060501
  Serious: Yes (Hospitalization)
  Sender: FDA-Public Use
  Company Number: None

PATIENT
  Age: 58 Year
  Sex: Male
  Weight: 83.0083 kg

DRUGS (2)
  1. MORPHINE [Suspect]
     Indication: PAIN
     Dosage: 15 MG  Q12HRS  PO
     Route: 048
  2. MORPHINE [Suspect]
     Indication: PAIN
     Dosage: 10 MG  Q4H PRN  PO
     Route: 048

REACTIONS (8)
  - INCORRECT DOSE ADMINISTERED [None]
  - INFECTION [None]
  - MENTAL STATUS CHANGES [None]
  - RENAL FAILURE ACUTE [None]
  - RESPIRATORY RATE INCREASED [None]
  - SEDATION [None]
  - SOMNOLENCE [None]
  - URINARY TRACT INFECTION [None]
